FAERS Safety Report 10189481 (Version 2)
Quarter: 2014Q2

REPORT INFORMATION
  Report Type: Spontaneous
  Country: US (occurrence: US)
  Receive Date: 20140522
  Receipt Date: 20140522
  Transmission Date: 20141212
  Serious: No
  Sender: FDA-Public Use
  Company Number: US-ASTRAZENECA-2013SE67618

PATIENT
  Age: 56 Year
  Sex: Female
  Weight: 49.9 kg

DRUGS (3)
  1. PULMICORT FLEXHALER [Suspect]
     Indication: ASTHMA
     Dosage: 180 MCG, 2 PUFFS BID
     Route: 055
  2. PULMICORT FLEXHALER [Suspect]
     Indication: ASTHMA
     Dosage: 180 MCG, 1 PUFF QD, TID, THREE TIMES A WEEK
     Route: 055
  3. PRILOSEC OTC [Suspect]
     Dosage: PRN
     Route: 048

REACTIONS (5)
  - Dry throat [Unknown]
  - Throat irritation [Unknown]
  - Dysphonia [Unknown]
  - Oropharyngeal discomfort [Unknown]
  - Intentional product misuse [Unknown]
